FAERS Safety Report 9232182 (Version 1)
Quarter: 2013Q2

REPORT INFORMATION
  Report Type: Spontaneous
  Country: US (occurrence: US)
  Receive Date: 20130415
  Receipt Date: 20130415
  Transmission Date: 20140414
  Serious: Yes (Other)
  Sender: FDA-Public Use
  Company Number: US-US-EMD SERONO, INC.-232669K09USA

PATIENT
  Sex: Female
  Weight: 82 kg

DRUGS (2)
  1. REBIF [Suspect]
     Indication: MULTIPLE SCLEROSIS
     Route: 058
     Dates: start: 20041102
  2. TYLENOL WITH CODEINE [Concomitant]
     Indication: MENSTRUAL DISCOMFORT

REACTIONS (2)
  - Uterine leiomyoma [Recovered/Resolved]
  - Scar [Not Recovered/Not Resolved]
